FAERS Safety Report 8009143-7 (Version None)
Quarter: 2011Q4

REPORT INFORMATION
  Report Type: 
  Country: None (occurrence: None)
  Receive Date: 20111227
  Receipt Date: 20111222
  Transmission Date: 20120403
  Serious: Yes (Other)
  Sender: FDA-Public Use
  Company Number: PHHY2011CA109546

PATIENT
  Sex: Female

DRUGS (5)
  1. CRESTOR [Concomitant]
     Dosage: 10 MG, UNK
  2. CLONIDINE [Concomitant]
     Dosage: 0.1 MG, BID
  3. ZOLEDRONOC ACID [Suspect]
     Indication: OSTEOPOROSIS
     Dosage: 5 MG/100 ML
     Route: 042
     Dates: start: 20111208
  4. ATACAND HCT [Concomitant]
     Dosage: 12.5 MG, QD
  5. EFFEXOR XR [Concomitant]
     Dosage: 150 MG, QD

REACTIONS (8)
  - NECK PAIN [None]
  - ARTHRALGIA [None]
  - SYNCOPE [None]
  - PAIN [None]
  - ASTHENIA [None]
  - LOSS OF CONSCIOUSNESS [None]
  - HYPOTENSION [None]
  - PAIN IN EXTREMITY [None]
